FAERS Safety Report 5966246-6 (Version None)
Quarter: 2008Q4

REPORT INFORMATION
  Report Type: 
  Country: None (occurrence: None)
  Receive Date: 20081119
  Receipt Date: 20080916
  Transmission Date: 20090506
  Serious: No
  Sender: FDA-Public Use
  Company Number: WAES 0809USA02463

PATIENT
  Age: 71 Year
  Sex: Male

DRUGS (4)
  1. JANUVIA [Suspect]
     Indication: DIABETES MELLITUS
     Dosage: 100 MG DAILY PO
     Route: 048
     Dates: start: 20080301
  2. AZOR [Suspect]
     Dosage: 10/40 MG UNK UNK
     Dates: start: 20080601
  3. LIPITOR [Concomitant]
  4. TOPROL-XL [Concomitant]

REACTIONS (1)
  - BLOOD GLUCOSE INCREASED [None]
